FAERS Safety Report 9802730 (Version 2)
Quarter: 2014Q1

REPORT INFORMATION
  Report Type: Spontaneous
  Country: US (occurrence: US)
  Receive Date: 20140108
  Receipt Date: 20140108
  Transmission Date: 20141002
  Serious: Yes (Other)
  Sender: FDA-Public Use
  Company Number: US-BRISTOL-MYERS SQUIBB COMPANY-19785112

PATIENT
  Sex: 0

DRUGS (2)
  1. ABILIFY [Suspect]
     Dosage: 15 MG FOR ANOTHER 10 DAYS.
     Route: 048
  2. ABILIFY MAINTENA INJECTION [Suspect]
     Indication: SCHIZOPHRENIA

REACTIONS (1)
  - Psychotic disorder [Recovered/Resolved]
